FAERS Safety Report 7557355-9 (Version None)
Quarter: 2011Q2

REPORT INFORMATION
  Report Type: 
  Country: None (occurrence: None)
  Receive Date: 20110620
  Receipt Date: 20110607
  Transmission Date: 20111010
  Serious: Yes (Hospitalization, Other)
  Sender: FDA-Public Use
  Company Number: PHHY2010CA48239

PATIENT
  Sex: Female

DRUGS (8)
  1. CALCIUM CARBONATE [Concomitant]
  2. VITAMIN D [Concomitant]
  3. SANDOSTATIN LAR [Suspect]
     Dosage: 20 MG, EVERY 4 WEEKS
     Route: 030
  4. VITAMIN B-12 [Concomitant]
  5. ALENDRONATE SODIUM [Concomitant]
  6. SANDOSTATIN LAR [Suspect]
     Indication: ACROMEGALY
     Dosage: 20 MG ONCE A MONTH
     Route: 030
     Dates: start: 20050524
  7. AMIODARONE HCL [Concomitant]
  8. WARFARIN SODIUM [Concomitant]

REACTIONS (8)
  - FRACTURE [None]
  - BACK PAIN [None]
  - GASTROENTERITIS VIRAL [None]
  - CONTUSION [None]
  - FALL [None]
  - FATIGUE [None]
  - UPPER LIMB FRACTURE [None]
  - ARTHRALGIA [None]
